FAERS Safety Report 4712965-9 (Version None)
Quarter: 2005Q3

REPORT INFORMATION
  Report Type: 
  Country: None (occurrence: None)
  Receive Date: 20050711
  Receipt Date: 20050629
  Transmission Date: 20060218
  Serious: Yes (Other)
  Sender: FDA-Public Use
  Company Number: 2005082033

PATIENT
  Age: 44 Year
  Sex: Female
  Weight: 56.6 kg

DRUGS (1)
  1. NICORETTE [Suspect]
     Indication: SMOKING CESSATION THERAPY
     Dosage: 15 MG DAILY THAN REDUCED TO 10MG DAILY, TRANSDERMAL
     Route: 062
     Dates: start: 20050503

REACTIONS (4)
  - CONSTIPATION [None]
  - DEPRESSION [None]
  - FLATULENCE [None]
  - TEARFULNESS [None]
